FAERS Safety Report 7991262-2 (Version None)
Quarter: 2011Q4

REPORT INFORMATION
  Report Type: 
  Country: None (occurrence: None)
  Receive Date: 20111219
  Receipt Date: 20111212
  Transmission Date: 20120403
  Serious: Yes (Other)
  Sender: FDA-Public Use
  Company Number: US-TEVA-313286USA

PATIENT
  Age: 69 Year
  Sex: Male

DRUGS (1)
  1. CARVEDILOL [Suspect]
     Dosage: 25 MG IN AM, 50 MG IN EVENING

REACTIONS (3)
  - DRUG WITHDRAWAL SYNDROME [None]
  - URINARY RETENTION [None]
  - BENIGN PROSTATIC HYPERPLASIA [None]
